FAERS Safety Report 15937445 (Version 1)
Quarter: 2019Q1

REPORT INFORMATION
  Report Type: Spontaneous
  Country: US (occurrence: US)
  Receive Date: 20190117
  Receipt Date: 20190117
  Transmission Date: 20190417
  Serious: No
  Sender: FDA-Public Use
  Company Number: None

PATIENT
  Age: 60 Year
  Sex: Female

DRUGS (1)
  1. TYKERB [Suspect]
     Active Substance: LAPATINIB DITOSYLATE
     Indication: BREAST CANCER
     Dates: start: 201812

REACTIONS (4)
  - Nephropathy [None]
  - Condition aggravated [None]
  - Skin fissures [None]
  - Back pain [None]

NARRATIVE: CASE EVENT DATE: 20181219
